FAERS Safety Report 15813985 (Version 1)
Quarter: 2019Q1

REPORT INFORMATION
  Report Type: Spontaneous
  Country: JP (occurrence: JP)
  Receive Date: 20190111
  Receipt Date: 20190111
  Transmission Date: 20190417
  Serious: Yes (Death, Hospitalization, Other)
  Sender: FDA-Public Use
  Company Number: JP-CASPER PHARMA LLC-2018CAS000417

PATIENT
  Age: 36 Year
  Sex: Male

DRUGS (1)
  1. BISMUTH, METRONIDAZOLE, TETRACYCLIN [Suspect]
     Active Substance: BISMUTH SUBSALICYLATE\METRONIDAZOLE\TETRACYCLINE HYDROCHLORIDE
     Indication: INFECTIOUS PLEURAL EFFUSION
     Dosage: 2 GRAM, QD
     Route: 048

REACTIONS (3)
  - Toxic encephalopathy [Fatal]
  - Myoclonus [Recovered/Resolved]
  - Product use in unapproved indication [Unknown]
